FAERS Safety Report 16288654 (Version 2)
Quarter: 2019Q3

REPORT INFORMATION
  Report Type: Other
  Country: IT (occurrence: IT)
  Receive Date: 20190509
  Receipt Date: 20190807
  Transmission Date: 20191004
  Serious: No
  Sender: FDA-Public Use
  Company Number: IT-LUPIN PHARMACEUTICALS INC.-2019-01882

PATIENT
  Age: 55 Year
  Sex: Female
  Weight: 96 kg

DRUGS (5)
  1. ZENGAC [Suspect]
     Active Substance: VANCOMYCIN HYDROCHLORIDE
     Indication: BRAIN ABSCESS
     Dosage: 2 GRAM, QD
     Route: 042
     Dates: start: 20180628
  2. FIDATO [Suspect]
     Active Substance: CEFTRIAXONE SODIUM
     Indication: ENCEPHALITIS
     Dosage: 4 GRAM, QD
     Route: 042
  3. LEVETIRACETAM. [Suspect]
     Active Substance: LEVETIRACETAM
     Indication: EPILEPSY
     Dosage: 3 MILLILITER, QD
     Route: 042
     Dates: start: 20180628
  4. RANITIDINA                         /00550801/ [Concomitant]
     Indication: PRODUCT USED FOR UNKNOWN INDICATION
     Dosage: UNK
     Route: 065
     Dates: start: 20180626, end: 20180703
  5. FUROSEMIDE. [Concomitant]
     Active Substance: FUROSEMIDE
     Indication: PRODUCT USED FOR UNKNOWN INDICATION
     Dosage: UNK
     Route: 065
     Dates: start: 20180626, end: 20180703

REACTIONS (2)
  - Erythema [Unknown]
  - Rash [Unknown]

NARRATIVE: CASE EVENT DATE: 20180629
